FAERS Safety Report 24031530 (Version 2)
Quarter: 2025Q2

REPORT INFORMATION
  Report Type: Spontaneous
  Country: US (occurrence: US)
  Receive Date: 20240629
  Receipt Date: 20250515
  Transmission Date: 20250716
  Serious: Yes (Life-Threatening, Other)
  Sender: AUROBINDO
  Company Number: US-MLMSERVICE-20240613-PI097197-00273-1

PATIENT
  Age: 32 Year
  Sex: Female

DRUGS (4)
  1. DEXAMETHASONE [Suspect]
     Active Substance: DEXAMETHASONE
     Indication: Acute respiratory distress syndrome
     Route: 065
  2. PROPOFOL [Suspect]
     Active Substance: PROPOFOL
     Indication: Sedative therapy
     Route: 065
  3. VERSED [Concomitant]
     Active Substance: MIDAZOLAM HYDROCHLORIDE
     Indication: Sedative therapy
     Route: 065
  4. FENTANYL [Concomitant]
     Active Substance: FENTANYL
     Indication: Sedative therapy
     Route: 065

REACTIONS (7)
  - Propofol infusion syndrome [Recovering/Resolving]
  - Renal failure [Recovering/Resolving]
  - Shock [Recovering/Resolving]
  - Multi-organ disorder [Recovering/Resolving]
  - Blood triglycerides increased [Recovering/Resolving]
  - Cardiomyopathy [Recovering/Resolving]
  - Rhabdomyolysis [Recovering/Resolving]
